FAERS Safety Report 9659544 (Version 1)
Quarter: 2013Q4

REPORT INFORMATION
  Report Type: Spontaneous
  Country: US (occurrence: US)
  Receive Date: 20131031
  Receipt Date: 20131031
  Transmission Date: 20140711
  Serious: Yes (Other)
  Sender: FDA-Public Use
  Company Number: US-JNJFOC-20131015836

PATIENT
  Sex: Male

DRUGS (1)
  1. REMICADE [Suspect]
     Indication: GASTROINTESTINAL DISORDER
     Route: 042

REACTIONS (1)
  - Upper limb fracture [Unknown]
